FAERS Safety Report 9045050 (Version 1)
Quarter: 2013Q1

REPORT INFORMATION
  Report Type: Report from Study
  Country: US (occurrence: US)
  Receive Date: 20130130
  Receipt Date: 20130130
  Transmission Date: 20140127
  Serious: No
  Sender: FDA-Public Use
  Company Number: US-ABBOTT-12P-163-0964870-00

PATIENT
  Age: 59 Year
  Sex: Female

DRUGS (22)
  1. HUMIRA 40 MG/0.8 ML PEN [Suspect]
     Indication: RHEUMATOID ARTHRITIS
     Dates: start: 200912, end: 201004
  2. HUMIRA 40 MG/0.8 ML PEN [Suspect]
     Dates: start: 20120302
  3. METHOTREXATE [Concomitant]
     Indication: PRODUCT USED FOR UNKNOWN INDICATION
     Dosage: 2.5 MG X 8 PILLS WEEKLY
  4. PREDNISONE [Concomitant]
     Indication: PRODUCT USED FOR UNKNOWN INDICATION
     Dosage: 10 MG DAILY
  5. ACIPHEX [Concomitant]
     Indication: PRODUCT USED FOR UNKNOWN INDICATION
     Dosage: 20 MG DAILY
  6. PROMETHAZINE [Concomitant]
     Indication: NAUSEA
     Dosage: 25 MG EVERY 6 HRS; AS NEEDED
  7. BENZONATATE [Concomitant]
     Indication: COUGH
     Dosage: 200MG CAPS UP TO 3 TIMES DAILY (HASN^T TAKEN IN AWHILE)
  8. CELEBREX [Concomitant]
     Indication: PRODUCT USED FOR UNKNOWN INDICATION
     Dosage: 200 MG DAILY
  9. SIMVASTATIN [Concomitant]
     Indication: BLOOD CHOLESTEROL
     Dosage: 40 MG DAILY
  10. AMITRIPTYLINE [Concomitant]
     Indication: PRODUCT USED FOR UNKNOWN INDICATION
     Dosage: 100MG TABS X 2 AT BEDTIME
  11. LEUCOVORIN CALCIUM [Concomitant]
     Indication: PRODUCT USED FOR UNKNOWN INDICATION
     Dosage: 5MG X 1 TAB WKLY (2 DAYS BEFORE METHOTREXATE)
  12. SINGULAR [Concomitant]
     Indication: HYPERSENSITIVITY
     Dosage: 10 MG DAILY
  13. SINGULAR [Concomitant]
     Indication: ASTHMA
  14. ZYTREC [Concomitant]
     Indication: HYPERSENSITIVITY
     Dosage: 10 MG DAILY
  15. ATENOLOL [Concomitant]
     Indication: HYPERTENSION
     Dosage: 25 MG DAILY
  16. PREMPRO [Concomitant]
     Indication: PRODUCT USED FOR UNKNOWN INDICATION
     Dosage: 0.45 MG/1.5 MG DAILY
  17. FLUTICASONE [Concomitant]
     Indication: PRODUCT USED FOR UNKNOWN INDICATION
     Route: 045
  18. PROAIR [Concomitant]
     Indication: PRODUCT USED FOR UNKNOWN INDICATION
  19. CENTRUM SILVER [Concomitant]
     Indication: PRODUCT USED FOR UNKNOWN INDICATION
  20. FISH OIL [Concomitant]
     Indication: PRODUCT USED FOR UNKNOWN INDICATION
  21. VITAMIN D [Concomitant]
     Indication: PRODUCT USED FOR UNKNOWN INDICATION
  22. B12 [Concomitant]
     Indication: PRODUCT USED FOR UNKNOWN INDICATION

REACTIONS (5)
  - Dizziness [Not Recovered/Not Resolved]
  - Dizziness [Not Recovered/Not Resolved]
  - Headache [Not Recovered/Not Resolved]
  - Hypertension [Not Recovered/Not Resolved]
  - Rash [Not Recovered/Not Resolved]
